FAERS Safety Report 9365496 (Version 1)
Quarter: 2013Q2

REPORT INFORMATION
  Report Type: Spontaneous
  Country: US (occurrence: None)
  Receive Date: 20130624
  Receipt Date: 20130624
  Transmission Date: 20140414
  Serious: No
  Sender: FDA-Public Use
  Company Number: None

PATIENT
  Age: 10 Year
  Sex: 0

DRUGS (1)
  1. AUSTRALIAN GOLD X-TREME SPORTS CONTINOUS SPRAY SUNSCREEN 5 BROAD SPECTRUM FORMULA [Suspect]
     Dates: start: 20130616

REACTIONS (2)
  - Sunburn [None]
  - Product quality issue [None]
